FAERS Safety Report 8932122 (Version 2)
Quarter: 2013Q2

REPORT INFORMATION
  Report Type: Spontaneous
  Country: FR (occurrence: FR)
  Receive Date: 20121128
  Receipt Date: 20130507
  Transmission Date: 20140414
  Serious: Yes (Hospitalization, Other)
  Sender: FDA-Public Use
  Company Number: FR-PFIZER INC-2012292709

PATIENT
  Age: 64 Year
  Sex: Male

DRUGS (4)
  1. EPINEPHRINE [Suspect]
     Indication: VENTRICULAR TACHYCARDIA
     Dosage: 1/10,000; 0.5 MG IN 30 SEC
     Route: 042
  2. EPINEPHRINE [Suspect]
     Dosage: UNK
     Route: 040
  3. AMIODARONE HYDROCHLORIDE [Concomitant]
     Indication: VENTRICULAR TACHYCARDIA
     Dosage: 200 MG, DAILY
     Route: 065
  4. BISOPROLOL [Concomitant]
     Indication: VENTRICULAR TACHYCARDIA
     Dosage: 10 MG DAILY

REACTIONS (6)
  - Ventricular tachycardia [Recovered/Resolved]
  - Off label use [Unknown]
  - Chest discomfort [Recovered/Resolved]
  - Troponin increased [Unknown]
  - Headache [Recovered/Resolved]
  - Drug ineffective [Unknown]
